FAERS Safety Report 6761486-0 (Version None)
Quarter: 2010Q2

REPORT INFORMATION
  Report Type: 
  Country: None (occurrence: None)
  Receive Date: 20100607
  Receipt Date: 20100527
  Transmission Date: 20101027
  Serious: Yes (Death, Other)
  Sender: FDA-Public Use
  Company Number: AXC-2010-000075

PATIENT
  Sex: Female

DRUGS (3)
  1. PHOTOFRIN [Suspect]
     Indication: NON-SMALL CELL LUNG CANCER STAGE II
     Dosage: 2 MG/KG BODY WEIGHT, SINGLE, INTRAVENOUS
     Route: 042
     Dates: start: 20030507, end: 20030507
  2. CARBOPLATIN [Concomitant]
  3. TAXOL [Concomitant]

REACTIONS (6)
  - BRONCHIAL OBSTRUCTION [None]
  - BRONCHIAL SECRETION RETENTION [None]
  - LOBAR PNEUMONIA [None]
  - NEOPLASM RECURRENCE [None]
  - PLEURAL EFFUSION [None]
  - PULMONARY FUNCTION TEST DECREASED [None]
